FAERS Safety Report 4786801-9 (Version None)
Quarter: 2005Q4

REPORT INFORMATION
  Report Type: 
  Country: None (occurrence: None)
  Receive Date: 20051003
  Receipt Date: 20051003
  Transmission Date: 20060501
  Serious: Yes (Congenital Anomaly)
  Sender: FDA-Public Use
  Company Number: None

PATIENT
  Age: 1 Day
  Sex: Male
  Weight: 2.7216 kg

DRUGS (2)
  1. PAXIL [Suspect]
     Indication: DEPRESSION
     Dates: start: 19941110, end: 19950410
  2. PAXIL [Suspect]
     Indication: STRESS
     Dates: start: 19941110, end: 19950410

REACTIONS (7)
  - ARRHYTHMIA NEONATAL [None]
  - CARDIAC SEPTAL DEFECT [None]
  - DRUG EXPOSURE DURING PREGNANCY [None]
  - NEONATAL DISORDER [None]
  - PREMATURE BABY [None]
  - TEMPERATURE REGULATION DISORDER [None]
  - VENTRICULAR TACHYCARDIA [None]
